FAERS Safety Report 8117752-X (Version None)
Quarter: 2012Q1

REPORT INFORMATION
  Report Type: 
  Country: None (occurrence: None)
  Receive Date: 20120203
  Receipt Date: 20120203
  Transmission Date: 20120608
  Serious: Yes (Life-Threatening, Hospitalization)
  Sender: FDA-Public Use
  Company Number: None

PATIENT
  Age: 54 Year
  Sex: Female
  Weight: 80.7403 kg

DRUGS (16)
  1. ROPINIROLE [Concomitant]
  2. COLACE [Concomitant]
  3. FLUOXETINE [Concomitant]
  4. RADIATION THERAPY FOR THE LUNG  (NON PROTOCOL) [Concomitant]
  5. SENNA [Concomitant]
  6. EXTERNAL RADIATION THERAPY FOR BRAIN [Concomitant]
  7. LYRICA [Concomitant]
  8. ALBUTEROL [Concomitant]
  9. NEXIUM [Concomitant]
  10. LORATADINE [Concomitant]
  11. VORINOSTAT (SAHA) -400MG/MERCK + CO., INC [Suspect]
     Indication: METASTASES TO CENTRAL NERVOUS SYSTEM
     Dosage: 400MG/WITH RT-5X WK/ORAL
     Route: 048
     Dates: start: 20111214, end: 20120105
  12. MONTELUKAST [Concomitant]
  13. CYCLOBENZAPRINE [Concomitant]
  14. LEVITIRACETAM [Concomitant]
  15. CHEMOTHERAPY FOR THE LUNG (NON PROTOCOL) [Concomitant]
  16. DECADRON [Concomitant]

REACTIONS (1)
  - PULMONARY EMBOLISM [None]
